FAERS Safety Report 13586555 (Version 3)
Quarter: 2020Q4

REPORT INFORMATION
  Report Type: Spontaneous
  Country: US (occurrence: US)
  Receive Date: 20170526
  Receipt Date: 20201127
  Transmission Date: 20210113
  Serious: Yes (Life-Threatening, Other)
  Sender: FDA-Public Use
  Company Number: US-MYLANLABS-2017M1030019

PATIENT
  Age: 41 Year
  Sex: Male
  Weight: 92.97 kg

DRUGS (2)
  1. EPIPEN [Suspect]
     Active Substance: EPINEPHRINE
     Indication: SEASONAL ALLERGY
     Dosage: 0.3 MG, PRN
     Route: 030
     Dates: start: 20170513, end: 20170513
  2. EPIPEN [Suspect]
     Active Substance: EPINEPHRINE
     Indication: ANAPHYLACTIC SHOCK

REACTIONS (3)
  - Contusion [Not Recovered/Not Resolved]
  - Needle issue [Unknown]
  - Device failure [Recovered/Resolved]

NARRATIVE: CASE EVENT DATE: 20170513
